FAERS Safety Report 21294920 (Version 1)
Quarter: 2022Q3

REPORT INFORMATION
  Report Type: Spontaneous
  Country: US (occurrence: None)
  Receive Date: 20220905
  Receipt Date: 20220905
  Transmission Date: 20221027
  Serious: Yes (Other)
  Sender: FDA-Public Use
  Company Number: 2022A307445

PATIENT
  Age: 45 Year
  Sex: Male

DRUGS (2)
  1. OLAPARIB [Suspect]
     Active Substance: OLAPARIB
     Indication: Glioblastoma
     Dosage: 150 MILLIGRAM, TIW; 6 WEEKS ON/3 WEEKS OFF
     Route: 048
  2. TEMODAR [Suspect]
     Active Substance: TEMOZOLOMIDE
     Indication: Glioblastoma
     Dosage: 75 MILLIGRAM/SQ. METER, QD; 6 WEEKS ON/3 WEEKS OFF
     Route: 048

REACTIONS (7)
  - Product use issue [Unknown]
  - Fatigue [Unknown]
  - Nausea [Unknown]
  - Constipation [Unknown]
  - Dyspepsia [Unknown]
  - Insomnia [Unknown]
  - Mucosal inflammation [Unknown]
